FAERS Safety Report 17669860 (Version 3)
Quarter: 2020Q2

REPORT INFORMATION
  Report Type: Spontaneous
  Country: DE (occurrence: DE)
  Receive Date: 20200415
  Receipt Date: 20200429
  Transmission Date: 20200713
  Serious: Yes (Other)
  Sender: FDA-Public Use
  Company Number: DE-PFIZER INC-2020154708

PATIENT
  Sex: Male
  Weight: 127 kg

DRUGS (11)
  1. AMLODIPINE BESILATE [Suspect]
     Active Substance: AMLODIPINE BESYLATE
     Dosage: 10 MG, 1X/DAY
     Dates: start: 20170328
  2. ASS AL [Suspect]
     Active Substance: ASPIRIN
     Dosage: 100, QD
     Dates: start: 20170301
  3. ROXI [ROXITHROMYCIN] [Suspect]
     Active Substance: ROXITHROMYCIN
     Dosage: UNK, 1X/DAY
     Dates: start: 20200320, end: 20200326
  4. ROSUVASTATIN RATIOPHARM [Suspect]
     Active Substance: ROSUVASTATIN
     Dosage: 10 MG, 1X/DAY
     Dates: start: 20190328
  5. METFORMIN HCL [Suspect]
     Active Substance: METFORMIN HYDROCHLORIDE
     Dosage: 2000 MILLIGRAM, QD
     Dates: start: 20100330
  6. INSULINE ASPARTE [Suspect]
     Active Substance: INSULIN ASPART
     Dosage: UNK
     Dates: start: 20160328
  7. PANTOPRAZOLE [Suspect]
     Active Substance: PANTOPRAZOLE
     Dosage: 20 MILLIGRAM, QD
     Dates: start: 20170328
  8. TOUJEO [Suspect]
     Active Substance: INSULIN GLARGINE
     Dosage: UNK (300 U/ML (28 DAILY))
     Dates: start: 20190606
  9. EPLERENONE. [Suspect]
     Active Substance: EPLERENONE
     Dosage: 25 MILLIGRAM, QD
     Dates: start: 20200113
  10. VALSARTAN - 1 A PHARMA PLUS 160 MG/12,5 MG FILMTABLETTEN [Suspect]
     Active Substance: HYDROCHLOROTHIAZIDE\VALSARTAN
     Dosage: 1 DF, 1X/DAY
     Dates: start: 20100330
  11. METOPROLOL. [Suspect]
     Active Substance: METOPROLOL
     Dosage: UNK UNK, BID
     Dates: start: 20170328

REACTIONS (9)
  - Nausea [Unknown]
  - Palpitations [Unknown]
  - Arthralgia [Unknown]
  - Influenza [Unknown]
  - Hypotonia [Unknown]
  - Diarrhoea [Unknown]
  - Abdominal pain upper [Unknown]
  - Arrhythmia [Unknown]
  - Cardiovascular disorder [Unknown]

NARRATIVE: CASE EVENT DATE: 20200321
